FAERS Safety Report 6723078-9 (Version None)
Quarter: 2010Q2

REPORT INFORMATION
  Report Type: 
  Country: None (occurrence: None)
  Receive Date: 20100513
  Receipt Date: 20100503
  Transmission Date: 20101027
  Serious: Yes (Hospitalization, Other)
  Sender: FDA-Public Use
  Company Number: CA-JNJFOC-20091204625

PATIENT
  Sex: Female
  Weight: 73 kg

DRUGS (3)
  1. REMICADE [Suspect]
     Indication: CROHN'S DISEASE
     Route: 042
  2. PREDNISONE [Suspect]
     Indication: CROHN'S DISEASE
  3. PREDNISONE [Suspect]
     Dosage: STOPPED APR-MAY-2009

REACTIONS (4)
  - BRAIN NEOPLASM BENIGN [None]
  - HEADACHE [None]
  - PETIT MAL EPILEPSY [None]
  - PYREXIA [None]
